FAERS Safety Report 8766161 (Version 2)
Quarter: 2012Q4

REPORT INFORMATION
  Report Type: Report from Study
  Country: DK (occurrence: DK)
  Receive Date: 20120904
  Receipt Date: 20120911
  Transmission Date: 20130627
  Serious: Yes (Hospitalization)
  Sender: FDA-Public Use
  Company Number: DK-ROCHE-1109568

PATIENT
  Age: 63 Year
  Sex: Male
  Weight: 53 kg

DRUGS (7)
  1. MABTHERA [Suspect]
     Indication: CHRONIC LYMPHOCYTIC LEUKAEMIA
     Dosage: Date of last dose prior to SAE: 24/May/2011
     Route: 042
     Dates: start: 20110426
  2. FLUDARABINE PHOSPHATE [Suspect]
     Indication: CHRONIC LYMPHOCYTIC LEUKAEMIA
     Dosage: Date of last dose prior to SAE: 26/May/2011
     Route: 042
     Dates: start: 20110427, end: 20110607
  3. CYCLOPHOSPHAMIDE [Suspect]
     Indication: CHRONIC LYMPHOCYTIC LEUKAEMIA
     Dosage: Date of last dose prior to SAE: 26/May/2011
     Route: 042
     Dates: start: 20110427
  4. ACYCLOVIR [Concomitant]
     Route: 065
     Dates: start: 20110426
  5. RAMIPRIL [Concomitant]
     Route: 065
  6. SIMVASTATIN [Concomitant]
     Route: 065
  7. ACETYLSALICYLIC ACID [Concomitant]
     Route: 065

REACTIONS (1)
  - Confusional state [Recovered/Resolved]
